FAERS Safety Report 8519053-4 (Version None)
Quarter: 2012Q3

REPORT INFORMATION
  Report Type: 
  Country: None (occurrence: None)
  Receive Date: 20120718
  Receipt Date: 20120711
  Transmission Date: 20120928
  Serious: Yes (Other)
  Sender: FDA-Public Use
  Company Number: PHHY2011US60140

PATIENT
  Age: 47 Year
  Sex: Female

DRUGS (2)
  1. CLOZAPINE [Suspect]
     Dosage: 700 MG, DAILY
  2. ARIPIPRAZOLE [Interacting]
     Dosage: 15 MG, UNK

REACTIONS (5)
  - HALLUCINATION, AUDITORY [None]
  - ANTIPSYCHOTIC DRUG LEVEL INCREASED [None]
  - DELUSION [None]
  - DRUG INTERACTION [None]
  - ABNORMAL BEHAVIOUR [None]
